FAERS Safety Report 6110389-3 (Version None)
Quarter: 2009Q1

REPORT INFORMATION
  Report Type: 
  Country: None (occurrence: None)
  Receive Date: 20090309
  Receipt Date: 20090309
  Transmission Date: 20090719
  Serious: Yes (Life-Threatening)
  Sender: FDA-Public Use
  Company Number: None

PATIENT
  Age: 55 Year
  Sex: Female
  Weight: 63.5036 kg

DRUGS (1)
  1. PEPTO BISMOL [Suspect]
     Indication: ABDOMINAL DISCOMFORT
     Dosage: AS PRESCRIBED FOR ADULT
     Dates: start: 20090306, end: 20090306

REACTIONS (1)
  - RESPIRATORY ARREST [None]
